FAERS Safety Report 6279821-9 (Version None)
Quarter: 2009Q3

REPORT INFORMATION
  Report Type: 
  Country: None (occurrence: None)
  Receive Date: 20090723
  Receipt Date: 20090713
  Transmission Date: 20100115
  Serious: Yes (Disabling)
  Sender: FDA-Public Use
  Company Number: PHEH2009US06018

PATIENT
  Sex: Female
  Weight: 50.34 kg

DRUGS (6)
  1. RECLAST [Suspect]
     Indication: OSTEOPOROSIS
     Dosage: 5 MG, YEARLY
     Dates: start: 20090526
  2. ZOLOFT [Concomitant]
  3. CALCIUM [Concomitant]
  4. VITAMIN D3 [Concomitant]
  5. ASCORBIC ACID [Concomitant]
  6. MULTI-VITAMINS [Concomitant]

REACTIONS (14)
  - ARTHRALGIA [None]
  - BACK PAIN [None]
  - CHILLS [None]
  - DECREASED APPETITE [None]
  - DIARRHOEA [None]
  - DIZZINESS [None]
  - FATIGUE [None]
  - HEADACHE [None]
  - MUSCLE SPASMS [None]
  - MYALGIA [None]
  - PAIN [None]
  - PAINFUL RESPIRATION [None]
  - PYREXIA [None]
  - RASH [None]
